FAERS Safety Report 5836417-8 (Version None)
Quarter: 2008Q3

REPORT INFORMATION
  Report Type: 
  Country: None (occurrence: None)
  Receive Date: 20080807
  Receipt Date: 20080807
  Transmission Date: 20090109
  Serious: No
  Sender: FDA-Public Use
  Company Number: None

PATIENT
  Age: 30 Year
  Sex: Female
  Weight: 110.6777 kg

DRUGS (1)
  1. HEPARIN LOCK-FLUSH [Suspect]
     Indication: INDWELLING CATHETER MANAGEMENT
     Dosage: VOLUME TO FLUSH ONCE IV
     Route: 042
     Dates: start: 20080430, end: 20080430

REACTIONS (10)
  - BLOOD PRESSURE INCREASED [None]
  - CRYING [None]
  - CYANOSIS [None]
  - DYSPNOEA [None]
  - GRAND MAL CONVULSION [None]
  - HEART RATE INCREASED [None]
  - MALAISE [None]
  - OXYGEN SATURATION DECREASED [None]
  - UNRESPONSIVE TO STIMULI [None]
  - VISUAL IMPAIRMENT [None]
